FAERS Safety Report 6820072-4 (Version None)
Quarter: 2010Q3

REPORT INFORMATION
  Report Type: 
  Country: None (occurrence: None)
  Receive Date: 20100707
  Receipt Date: 20100628
  Transmission Date: 20110219
  Serious: Yes (Hospitalization)
  Sender: FDA-Public Use
  Company Number: B0662895A

PATIENT
  Age: 27 Year
  Sex: Male
  Weight: 60 kg

DRUGS (1)
  1. ZYBAN [Suspect]
     Dosage: 150MG PER DAY
     Route: 048
     Dates: start: 20100303, end: 20100313

REACTIONS (3)
  - DEAFNESS [None]
  - TINNITUS [None]
  - VOMITING [None]
